FAERS Safety Report 12841489 (Version 1)
Quarter: 2016Q4

REPORT INFORMATION
  Report Type: Spontaneous
  Country: US (occurrence: US)
  Receive Date: 20161012
  Receipt Date: 20161012
  Transmission Date: 20170207
  Serious: No
  Sender: FDA-Public Use
  Company Number: US-ELI_LILLY_AND_COMPANY-US201610002629

PATIENT
  Age: 39 Year
  Sex: Male

DRUGS (1)
  1. HUMALOG [Suspect]
     Active Substance: INSULIN LISPRO
     Indication: TYPE 1 DIABETES MELLITUS
     Dosage: UNK, UNKNOWN
     Route: 058
     Dates: start: 20160922

REACTIONS (4)
  - Malaise [Unknown]
  - Wrong drug administered [Recovered/Resolved]
  - Blood glucose decreased [Unknown]
  - Headache [Unknown]

NARRATIVE: CASE EVENT DATE: 20160922
